FAERS Safety Report 12439645 (Version 3)
Quarter: 2016Q3

REPORT INFORMATION
  Report Type: Spontaneous
  Country: US (occurrence: US)
  Receive Date: 20160606
  Receipt Date: 20160812
  Transmission Date: 20161109
  Serious: Yes (Hospitalization, Other)
  Sender: FDA-Public Use
  Company Number: US-009507513-1605USA010883

PATIENT
  Age: 52 Year
  Sex: Male
  Weight: 201.5 kg

DRUGS (1)
  1. BELSOMRA [Suspect]
     Active Substance: SUVOREXANT
     Indication: INSOMNIA
     Dosage: 10 MG, ONCE
     Route: 048
     Dates: start: 20160516, end: 20160516

REACTIONS (15)
  - Oropharyngeal pain [Unknown]
  - Pharyngitis [Unknown]
  - Dyspnoea [Recovered/Resolved]
  - Paranasal sinus discomfort [Unknown]
  - Obesity [Unknown]
  - Hypertension [Unknown]
  - Vitamin D deficiency [Unknown]
  - Dry mouth [Not Recovered/Not Resolved]
  - Sinus congestion [Unknown]
  - Type 2 diabetes mellitus [Unknown]
  - Paraesthesia [Recovered/Resolved]
  - Dysphagia [Recovered/Resolved]
  - Epistaxis [Recovered/Resolved]
  - Pharyngeal oedema [Recovered/Resolved]
  - Depression [Unknown]

NARRATIVE: CASE EVENT DATE: 20160516
